FAERS Safety Report 8124889-8 (Version None)
Quarter: 2012Q1

REPORT INFORMATION
  Report Type: 
  Country: None (occurrence: None)
  Receive Date: 20120209
  Receipt Date: 20120131
  Transmission Date: 20120608
  Serious: Yes (Other)
  Sender: FDA-Public Use
  Company Number: JP-PFIZER INC-2012021975

PATIENT
  Age: 76 Year
  Sex: Female

DRUGS (2)
  1. ZOSYN [Suspect]
     Indication: PNEUMONIA
     Dosage: 4.5 G, 2X/DAY
     Route: 041
     Dates: start: 20120105, end: 20120107
  2. MEROPENEM [Suspect]
     Indication: PNEUMONIA
     Dosage: 0.5 G, 2X/DAY

REACTIONS (1)
  - APLASTIC ANAEMIA [None]
